FAERS Safety Report 16909547 (Version 1)
Quarter: 2019Q4

REPORT INFORMATION
  Report Type: Report from Study
  Country: CA (occurrence: CA)
  Receive Date: 20191011
  Receipt Date: 20191011
  Transmission Date: 20200122
  Serious: Yes (Other)
  Sender: FDA-Public Use
  Company Number: CA-APOPHARMA INC-2019AP023233

PATIENT
  Sex: Female
  Weight: 60 kg

DRUGS (1)
  1. FERRIPROX [Suspect]
     Active Substance: DEFERIPRONE
     Indication: THALASSAEMIA
     Dosage: 91 MG/KG, UNK
     Route: 048
     Dates: start: 20130923

REACTIONS (1)
  - Cardiac iron overload [Unknown]
